FAERS Safety Report 8756845 (Version 1)
Quarter: 2012Q4

REPORT INFORMATION
  Report Type: 
  Country: US (occurrence: US)
  Receive Date: 20120828
  Receipt Date: 20120828
  Transmission Date: 20130627
  Serious: No
  Sender: FDA-Public Use
  Company Number: US-009507513-1207USA010410

PATIENT

DRUGS (2)
  1. ZEGERID OTC [Suspect]
     Indication: PRODUCT USED FOR UNKNOWN INDICATION
     Dosage: 20 mg, Unknown
     Route: 048
     Dates: start: 2008
  2. ZEGERID OTC [Suspect]
     Indication: MEDICAL OBSERVATION
     Dosage: 40 mg, Unknown
     Route: 048
     Dates: start: 2012

REACTIONS (4)
  - Chest pain [Unknown]
  - Dyspepsia [Unknown]
  - Incorrect drug administration duration [Unknown]
  - Overdose [Unknown]
